FAERS Safety Report 4968872-X (Version None)
Quarter: 2006Q2

REPORT INFORMATION
  Report Type: 
  Country: None (occurrence: None)
  Receive Date: 20060405
  Receipt Date: 20060324
  Transmission Date: 20061013
  Serious: Yes (Hospitalization)
  Sender: FDA-Public Use
  Company Number: 2006008046

PATIENT
  Age: 75 Year
  Sex: Male
  Weight: 70.3075 kg

DRUGS (13)
  1. NORVASC [Suspect]
     Indication: HYPERTENSION
     Dosage: 5 MG (5 MG, DAILY INTERVAL: EVERY DAY), ORAL
     Route: 048
     Dates: start: 20050913, end: 20060117
  2. ANTIHYPERTENSIVES [Concomitant]
  3. LIPITOR (ATORVASTATIN) [Concomitant]
  4. METOPROLOL SUCCINATE [Concomitant]
  5. COZAAR [Concomitant]
  6. SPIRONOLACTONE W/HYDROCHLORTHIAZIDE (HYDROCHLOROTHIAZIDE, SPIRONOLACTO [Concomitant]
  7. ISOSORBIDE MONONITRATE [Concomitant]
  8. QUESTRAN [Concomitant]
  9. PRILOSEC [Concomitant]
  10. ACETYLSALICYLIC ACID SRT [Concomitant]
  11. GAVISCON [Concomitant]
  12. ROLAIDS [Concomitant]
  13. CENTRUM SILVER (ASCORBIC ACID, CALCIUM, MINERALS NOS, RETINOL, TOCOPHE [Concomitant]

REACTIONS (31)
  - ANAEMIA [None]
  - ARTHROPOD BITE [None]
  - BLISTER [None]
  - CONDITION AGGRAVATED [None]
  - DRUG INEFFECTIVE [None]
  - EXFOLIATIVE RASH [None]
  - FUNGAL INFECTION [None]
  - HAEMOPTYSIS [None]
  - HYPERTENSIVE HEART DISEASE [None]
  - INSOMNIA [None]
  - JOINT SWELLING [None]
  - NAIL DISORDER [None]
  - NASOPHARYNGITIS [None]
  - OEDEMA [None]
  - PAIN [None]
  - PHARMACEUTICAL PRODUCT COMPLAINT [None]
  - PITTING OEDEMA [None]
  - POSTNASAL DRIP [None]
  - PRODUCTIVE COUGH [None]
  - PYREXIA [None]
  - RASH ERYTHEMATOUS [None]
  - RASH PRURITIC [None]
  - SEBORRHOEIC KERATOSIS [None]
  - SERUM FERRITIN INCREASED [None]
  - SINUS HEADACHE [None]
  - STASIS DERMATITIS [None]
  - THROAT IRRITATION [None]
  - TINEA INFECTION [None]
  - URTICARIA [None]
  - VIRAL INFECTION [None]
  - XERODERMA [None]
